FAERS Safety Report 9802871 (Version 1)
Quarter: 2014Q1

REPORT INFORMATION
  Report Type: Spontaneous
  Country: US (occurrence: None)
  Receive Date: 20140106
  Receipt Date: 20140106
  Transmission Date: 20141002
  Serious: Yes (Disabling, Other)
  Sender: FDA-Public Use
  Company Number: None

PATIENT
  Age: 60 Year
  Sex: Female
  Weight: 81.65 kg

DRUGS (2)
  1. WELLBUTRIN [Suspect]
     Indication: IRRITABILITY
     Dosage: 200MG IN AM/200MG IN PM TWICE DAILY TAKEN BY MOUTH
     Route: 048
     Dates: start: 20090131, end: 20140105
  2. WELLBUTRIN [Suspect]
     Indication: DYSTHYMIC DISORDER
     Dosage: 200MG IN AM/200MG IN PM TWICE DAILY TAKEN BY MOUTH
     Route: 048
     Dates: start: 20090131, end: 20140105

REACTIONS (3)
  - Delirium [None]
  - Disorientation [None]
  - Cognitive disorder [None]
